FAERS Safety Report 17425904 (Version 4)
Quarter: 2020Q2

REPORT INFORMATION
  Report Type: Spontaneous
  Country: US (occurrence: US)
  Receive Date: 20200217
  Receipt Date: 20200401
  Transmission Date: 20200713
  Serious: Yes (Other)
  Sender: FDA-Public Use
  Company Number: US-PFIZER INC-2020009443

PATIENT
  Age: 61 Year

DRUGS (1)
  1. RELPAX [Suspect]
     Active Substance: ELETRIPTAN HYDROBROMIDE
     Indication: MIGRAINE WITHOUT AURA
     Dosage: 40 MG, AS NEEDED (REPEAT IN 2 HOURS IF NEEDED MAX OF 2 TABS/ 24 HOURS)
     Route: 048
     Dates: start: 20200107

REACTIONS (3)
  - Product prescribing error [Unknown]
  - Headache [Unknown]
  - Breast cancer [Unknown]
